FAERS Safety Report 5599882-X (Version None)
Quarter: 2008Q1

REPORT INFORMATION
  Report Type: 
  Country: None (occurrence: None)
  Receive Date: 20080123
  Receipt Date: 20080118
  Transmission Date: 20080703
  Serious: Yes (Death, Hospitalization, Disabling)
  Sender: FDA-Public Use
  Company Number: JP-BRISTOL-MYERS SQUIBB COMPANY-13848163

PATIENT
  Age: 67 Year
  Sex: Male
  Weight: 46 kg

DRUGS (9)
  1. BRIPLATIN [Suspect]
     Indication: PLEURAL MESOTHELIOMA MALIGNANT
     Dosage: FROM 18/DEC/06-1/FEB/07
     Route: 041
     Dates: start: 20070306
  2. PARAPLATIN [Suspect]
     Indication: PLEURAL MESOTHELIOMA MALIGNANT
     Route: 041
     Dates: start: 20070410, end: 20070410
  3. ALIMTA [Suspect]
     Indication: PLEURAL MESOTHELIOMA MALIGNANT
     Route: 042
     Dates: start: 20070306
  4. GEMZAR [Suspect]
     Indication: PLEURAL MESOTHELIOMA MALIGNANT
     Dosage: GEMSAR TAKEN 600MG/M2 ONCE IN 2WEEKS 10-APR-2007 TO 24-APR-2007 AND 18-MAY-2007 TO 03-AUG-2007
     Route: 042
     Dates: start: 20061218, end: 20070208
  5. PANVITAN [Concomitant]
     Route: 048
     Dates: start: 20070222, end: 20070508
  6. CYANOCOBALAMIN [Concomitant]
     Route: 030
     Dates: start: 20070222, end: 20070222
  7. TAKEPRON [Concomitant]
     Route: 048
     Dates: start: 20070113, end: 20070928
  8. KYTRIL [Concomitant]
     Route: 041
     Dates: start: 20061218, end: 20070803
  9. DECADRON [Concomitant]
     Route: 041
     Dates: start: 20061218, end: 20070803

REACTIONS (9)
  - ANAEMIA [None]
  - LYMPHOCYTE COUNT DECREASED [None]
  - MALIGNANT NEOPLASM PROGRESSION [None]
  - MYELODYSPLASTIC SYNDROME [None]
  - NEUTROPHIL COUNT DECREASED [None]
  - PLATELET COUNT DECREASED [None]
  - REFLUX OESOPHAGITIS [None]
  - RENAL IMPAIRMENT [None]
  - WHITE BLOOD CELL COUNT DECREASED [None]
